FAERS Safety Report 14325512 (Version 1)
Quarter: 2017Q4

REPORT INFORMATION
  Report Type: Spontaneous
  Country: PT (occurrence: PT)
  Receive Date: 20171226
  Receipt Date: 20171226
  Transmission Date: 20180321
  Serious: Yes (Hospitalization, Other)
  Sender: FDA-Public Use
  Company Number: PT-MYLANLABS-2017M1081868

PATIENT
  Age: 39 Year
  Sex: Male

DRUGS (5)
  1. CIPROFLOXACIN. [Suspect]
     Active Substance: CIPROFLOXACIN
     Indication: CHOLANGITIS
  2. PROPOFOL. [Suspect]
     Active Substance: PROPOFOL
     Indication: PRODUCT USED FOR UNKNOWN INDICATION
  3. CEFTRIAXONE. [Concomitant]
     Active Substance: CEFTRIAXONE
     Indication: CHOLANGITIS ACUTE
  4. IOBITRIDOL [Concomitant]
     Active Substance: IOBITRIDOL
     Indication: PRODUCT USED FOR UNKNOWN INDICATION
  5. MEROPENEM. [Concomitant]
     Active Substance: MEROPENEM
     Indication: CHOLANGITIS

REACTIONS (2)
  - Off label use [Recovered/Resolved]
  - Hepatitis toxic [Recovered/Resolved]
